FAERS Safety Report 11810537 (Version 2)
Quarter: 2016Q1

REPORT INFORMATION
  Report Type: Report from Study
  Country: DE (occurrence: DE)
  Receive Date: 20151208
  Receipt Date: 20160108
  Transmission Date: 20160525
  Serious: Yes (Hospitalization, Other)
  Sender: FDA-Public Use
  Company Number: DE-INCYTE CORPORATION-2015IN005638

PATIENT
  Sex: Male
  Weight: 61 kg

DRUGS (7)
  1. INCB018424 [Suspect]
     Active Substance: RUXOLITINIB
     Dosage: 50 MG, QD
     Route: 048
     Dates: start: 20150729, end: 20150831
  2. ACICLOVIR [Concomitant]
     Active Substance: ACYCLOVIR
     Dosage: 800 MG, QD
     Route: 065
     Dates: start: 20150908, end: 20150920
  3. ELIQUIS [Concomitant]
     Active Substance: APIXABAN
     Indication: ANTICOAGULANT THERAPY
     Dosage: 5 MG, QD
     Route: 065
     Dates: start: 20151111
  4. INCB018424 [Suspect]
     Active Substance: RUXOLITINIB
     Indication: PRIMARY MYELOFIBROSIS
     Dosage: 20 MG, BID (2 DF PER DAY)
     Route: 048
     Dates: start: 20150411
  5. INCB018424 [Suspect]
     Active Substance: RUXOLITINIB
     Dosage: 20 MG, BID (2 DF PER DAY)
     Route: 048
     Dates: start: 20150921, end: 20151104
  6. PANTOPRAZOL [Concomitant]
     Active Substance: PANTOPRAZOLE SODIUM
     Indication: BARRETT^S OESOPHAGUS
     Dosage: 20 OT, QD (PER DAY)
     Route: 065
     Dates: start: 20140522
  7. ACICLOVIR [Concomitant]
     Active Substance: ACYCLOVIR
     Indication: HERPES ZOSTER
     Dosage: 4000 MG, QD
     Route: 065
     Dates: start: 20150901, end: 20150920

REACTIONS (3)
  - Dyspnoea exertional [Recovered/Resolved]
  - Atrial fibrillation [Recovered/Resolved]
  - Cardiac failure chronic [Not Recovered/Not Resolved]

NARRATIVE: CASE EVENT DATE: 20150818
